FAERS Safety Report 4461800-5 (Version None)
Quarter: 2004Q3

REPORT INFORMATION
  Report Type: 
  Country: None (occurrence: None)
  Receive Date: 20040923
  Receipt Date: 20030121
  Transmission Date: 20050211
  Serious: Yes (Death)
  Sender: FDA-Public Use
  Company Number: 2004234132CA

PATIENT
  Age: 49 Year
  Sex: Female

DRUGS (4)
  1. ZYVOX [Suspect]
     Indication: PNEUMONIA
     Dosage: 600 MG, BID, IV
     Route: 042
     Dates: start: 20021007, end: 20021018
  2. CIPROFLOXACIN [Suspect]
     Indication: PNEUMONIA
     Dosage: 400 MG, BID, IV
     Route: 042
     Dates: start: 20021001, end: 20021018
  3. GALENIC/PIPERACILLIN/TAZOBACTAM(TAZOBACTAM SODIUM) [Suspect]
     Indication: PNEUMONIA
     Dosage: 3.375 G, QID, IV
     Route: 042
     Dates: start: 20021001, end: 20021018
  4. BACTRIM [Concomitant]

REACTIONS (2)
  - CONDITION AGGRAVATED [None]
  - INTERSTITIAL LUNG DISEASE [None]
